FAERS Safety Report 23045676 (Version 1)
Quarter: 2023Q4

REPORT INFORMATION
  Report Type: Spontaneous
  Country: US (occurrence: US)
  Receive Date: 20231009
  Receipt Date: 20231009
  Transmission Date: 20240109
  Serious: Yes (Other)
  Sender: FDA-Public Use
  Company Number: US-BRISTOL-MYERS SQUIBB COMPANY-2023-141193

PATIENT
  Age: 74 Year
  Sex: Female

DRUGS (1)
  1. REVLIMID [Suspect]
     Active Substance: LENALIDOMIDE
     Indication: Plasma cell myeloma
     Dosage: FREQUENCY: 21
     Dates: start: 202303

REACTIONS (7)
  - Amnesia [Unknown]
  - Abnormal faeces [Unknown]
  - Flatulence [Unknown]
  - Irritability [Unknown]
  - Crying [Unknown]
  - Decreased appetite [Unknown]
  - Cerebrovascular accident [Unknown]
